FAERS Safety Report 18907989 (Version 1)
Quarter: 2021Q1

REPORT INFORMATION
  Report Type: Spontaneous
  Country: ID (occurrence: ID)
  Receive Date: 20210218
  Receipt Date: 20210218
  Transmission Date: 20210420
  Serious: Yes (Other)
  Sender: FDA-Public Use
  Company Number: ID-LUPIN PHARMACEUTICALS INC.-2021-01989

PATIENT
  Age: 32 Year
  Sex: Female

DRUGS (9)
  1. ACETYLCYSTEINE. [Concomitant]
     Active Substance: ACETYLCYSTEINE
     Indication: SYMPTOMATIC TREATMENT
     Dosage: 1200 MILLIGRAM, QD
     Route: 042
  2. VITAMIN B COMPLEX [Concomitant]
     Active Substance: CYANOCOBALAMIN\DEXPANTHENOL\NIACINAMIDE\PYRIDOXINE HYDROCHLORIDE\RIBOFLAVIN 5^-PHOSPHATE SODIUM\THIAMINE HYDROCHLORIDE\VITAMIN B COMPLEX
     Indication: SYMPTOMATIC TREATMENT
     Dosage: 1 DOSAGE FORM, QD
     Route: 065
  3. VITAMIN C [Concomitant]
     Active Substance: ASCORBIC ACID
     Indication: SYMPTOMATIC TREATMENT
     Dosage: 500 MILLIGRAM, QD
     Route: 048
  4. ALBUMIN [Concomitant]
     Active Substance: ALBUMIN HUMAN
     Indication: SYMPTOMATIC TREATMENT
     Dosage: 2 DOSAGE FORM, TID
     Route: 048
  5. LOVENOX [Concomitant]
     Active Substance: ENOXAPARIN SODIUM
     Indication: SYMPTOMATIC TREATMENT
     Dosage: UNK UNK, BID (0.6CC/12 HOURS )
     Route: 058
  6. ZINC. [Concomitant]
     Active Substance: ZINC
     Indication: SYMPTOMATIC TREATMENT
     Dosage: 20 MILLIGRAM, QD
     Route: 065
  7. ARTESUNATE [Concomitant]
     Active Substance: ARTESUNATE
     Indication: MALARIA
     Dosage: 132 MILLIGRAM (INJECTION THERAPY OF 132 MG AT 0, 12, AND 24 HOURS THEN CONTINUED ADMINISTRATION 24 H
     Route: 065
  8. AZITHROMYCIN ANHYDROUS. [Suspect]
     Active Substance: AZITHROMYCIN ANHYDROUS
     Indication: COVID-19
     Dosage: 500 MILLIGRAM
     Route: 065
  9. OSELTAMIVIR [Suspect]
     Active Substance: OSELTAMIVIR
     Indication: COVID-19
     Dosage: 75 MILLIGRAM, BID
     Route: 065

REACTIONS (1)
  - Off label use [Unknown]
